FAERS Safety Report 8859545 (Version 1)
Quarter: 2012Q4

REPORT INFORMATION
  Report Type: 
  Country: GB (occurrence: GB)
  Receive Date: 20121024
  Receipt Date: 20121024
  Transmission Date: 20130627
  Serious: Yes (Hospitalization, Other)
  Sender: FDA-Public Use
  Company Number: GB-009507513-1210GBR010297

PATIENT
  Age: 80 Year
  Sex: Male

DRUGS (5)
  1. EMEND [Suspect]
     Indication: MULTIPLE MYELOMA
     Dosage: 120 mg, UNK
     Route: 048
  2. EMEND [Suspect]
     Indication: MULTIPLE MYELOMA
     Dosage: 80 mg X 2
     Route: 048
  3. VELCADE [Concomitant]
  4. CORTICOSTEROIDS (UNSPECIFIED) [Concomitant]
  5. ACYCLOVIR [Concomitant]

REACTIONS (1)
  - Renal impairment [Recovering/Resolving]
